FAERS Safety Report 5953135-6 (Version None)
Quarter: 2008Q4

REPORT INFORMATION
  Report Type: 
  Country: None (occurrence: None)
  Receive Date: 20081031
  Receipt Date: 20080818
  Transmission Date: 20090506
  Serious: Yes (Other)
  Sender: FDA-Public Use
  Company Number: US024399

PATIENT
  Age: 41 Year
  Sex: Male

DRUGS (7)
  1. PROVIGIL [Suspect]
     Indication: NARCOLEPSY
     Dosage: ORAL
     Route: 048
     Dates: start: 20080501
  2. PROVIGIL [Suspect]
     Indication: SLEEP APNOEA SYNDROME
     Dosage: ORAL
     Route: 048
     Dates: start: 20080501
  3. XYREM [Suspect]
     Indication: NARCOLEPSY
     Dosage: 7.5 G DAILY ORAL
     Route: 048
     Dates: start: 20080601
  4. XYREM [Suspect]
     Indication: SLEEP APNOEA SYNDROME
     Dosage: 7.5 G DAILY ORAL
     Route: 048
     Dates: start: 20080601
  5. NIACIN [Concomitant]
  6. MULTIVITAMIN /01229101/ [Concomitant]
  7. SILDENAFIL CITRATE [Concomitant]

REACTIONS (3)
  - DECREASED APPETITE [None]
  - NAUSEA [None]
  - WEIGHT DECREASED [None]
